FAERS Safety Report 4437788-X (Version None)
Quarter: 2004Q3

REPORT INFORMATION
  Report Type: 
  Country: None (occurrence: None)
  Receive Date: 20040728
  Receipt Date: 20040316
  Transmission Date: 20050211
  Serious: No
  Sender: FDA-Public Use
  Company Number: USA040362247

PATIENT
  Age: 26 Year
  Sex: Female

DRUGS (3)
  1. STRATTERA [Suspect]
     Indication: ATTENTION DEFICIT/HYPERACTIVITY DISORDER
     Dosage: 40 MG DAY
     Dates: start: 20030723, end: 20030831
  2. WELLBUTRIN [Concomitant]
  3. EFFEXOR [Concomitant]

REACTIONS (3)
  - DEPRESSION [None]
  - DRUG INTERACTION [None]
  - PANIC REACTION [None]
